FAERS Safety Report 4538398-6 (Version None)
Quarter: 2004Q4

REPORT INFORMATION
  Report Type: 
  Country: None (occurrence: None)
  Receive Date: 20041223
  Receipt Date: 20041223
  Transmission Date: 20050328
  Serious: No
  Sender: FDA-Public Use
  Company Number: None

PATIENT
  Age: 55 Year
  Sex: Female
  Weight: 81.1939 kg

DRUGS (16)
  1. REMICADE [Suspect]
     Indication: RHEUMATOID ARTHRITIS
     Dosage: 250 MG IV
     Route: 042
     Dates: start: 20040806
  2. REMICADE [Suspect]
     Indication: RHEUMATOID ARTHRITIS
     Dosage: 250 MG IV
     Route: 042
     Dates: start: 20040824
  3. REMICADE [Suspect]
     Indication: RHEUMATOID ARTHRITIS
     Dosage: 250 MG IV
     Route: 042
     Dates: start: 20040920
  4. REMICADE [Suspect]
     Indication: RHEUMATOID ARTHRITIS
     Dosage: 250 MG IV
     Route: 042
     Dates: start: 20041115
  5. REMICADE [Suspect]
  6. ROBAXIN [Concomitant]
  7. GLUCOPHAGE [Concomitant]
  8. AVAPRO [Concomitant]
  9. FOLIC ACID [Concomitant]
  10. CELEBREX [Concomitant]
  11. ACCUPRIL [Concomitant]
  12. ALLEGRA-D [Concomitant]
  13. NEXIUM [Concomitant]
  14. LIPITOR [Concomitant]
  15. METHOTREXATE [Concomitant]
  16. VICODIN [Concomitant]

REACTIONS (2)
  - INFUSION RELATED REACTION [None]
  - URTICARIA [None]
